FAERS Safety Report 5453120-7 (Version None)
Quarter: 2007Q3

REPORT INFORMATION
  Report Type: 
  Country: None (occurrence: None)
  Receive Date: 20070914
  Receipt Date: 20070902
  Transmission Date: 20080115
  Serious: Yes (Other)
  Sender: FDA-Public Use
  Company Number: US-PFIZER INC-2007074111

PATIENT
  Sex: Male
  Weight: 65.8 kg

DRUGS (11)
  1. CHANTIX [Suspect]
     Indication: SMOKING CESSATION THERAPY
     Dosage: FREQ:EVERY DAY
  2. OTHER RESPIRATORY SYSTEM PRODUCTS [Concomitant]
  3. TAMSULOSIN HCL [Concomitant]
  4. AVODART [Concomitant]
  5. TOPROL-XL [Concomitant]
  6. PROTONIX [Concomitant]
  7. PHENOBARBITAL TAB [Concomitant]
  8. DILANTIN [Concomitant]
  9. MECLIZINE [Concomitant]
  10. VICODIN ES [Concomitant]
  11. ANTITHROMBOTIC AGENTS [Concomitant]

REACTIONS (2)
  - DEHYDRATION [None]
  - VOMITING [None]
